FAERS Safety Report 8357223-9 (Version None)
Quarter: 2012Q2

REPORT INFORMATION
  Report Type: 
  Country: None (occurrence: None)
  Receive Date: 20120514
  Receipt Date: 20120501
  Transmission Date: 20120825
  Serious: Yes (Hospitalization)
  Sender: FDA-Public Use
  Company Number: US-ELI_LILLY_AND_COMPANY-US201007000933

PATIENT
  Sex: Female

DRUGS (1)
  1. ZYPREXA [Suspect]
     Indication: BIPOLAR DISORDER

REACTIONS (6)
  - INFLUENZA LIKE ILLNESS [None]
  - ASTHENIA [None]
  - GAIT DISTURBANCE [None]
  - HEPATITIS B [None]
  - PYREXIA [None]
  - HEPATIC ENZYME INCREASED [None]
